FAERS Safety Report 17168782 (Version 2)
Quarter: 2019Q4

REPORT INFORMATION
  Report Type: Spontaneous
  Country: BE (occurrence: BE)
  Receive Date: 20191218
  Receipt Date: 20191220
  Transmission Date: 20200122
  Serious: Yes (Hospitalization, Disabling)
  Sender: FDA-Public Use
  Company Number: BE-MYLANLABS-2019M1125418

PATIENT
  Age: 35 Year
  Sex: Male

DRUGS (1)
  1. QUETIAPINE. [Suspect]
     Active Substance: QUETIAPINE
     Indication: AFFECTIVE DISORDER
     Dosage: 1000 MILLIGRAM, QD
     Route: 048

REACTIONS (4)
  - Priapism [Recovered/Resolved with Sequelae]
  - Erectile dysfunction [Not Recovered/Not Resolved]
  - Implant site inflammation [Unknown]
  - Overdose [Unknown]

NARRATIVE: CASE EVENT DATE: 20190505
